FAERS Safety Report 11496335 (Version 1)
Quarter: 2015Q3

REPORT INFORMATION
  Report Type: Spontaneous
  Country: FR (occurrence: FR)
  Receive Date: 20150911
  Receipt Date: 20150911
  Transmission Date: 20151125
  Serious: Yes (Hospitalization)
  Sender: FDA-Public Use
  Company Number: FR-SA-2015SA135906

PATIENT
  Age: 80 Year
  Sex: Female

DRUGS (13)
  1. CALCIPARINE [Suspect]
     Active Substance: HEPARIN CALCIUM
     Dosage: FREEQUENCY:2 DAY
     Route: 058
     Dates: start: 20150617, end: 20150620
  2. LOVENOX [Suspect]
     Active Substance: ENOXAPARIN SODIUM
     Dosage: FREEQUENCY: 2 DAY
     Route: 058
     Dates: start: 20150605, end: 20150617
  3. DIAMICRON [Concomitant]
     Active Substance: GLICLAZIDE
     Dosage: STRENGTH:60
  4. AUGMENTIN [Suspect]
     Active Substance: AMOXICILLIN\CLAVULANATE POTASSIUM
     Route: 042
     Dates: start: 20150609, end: 20150613
  5. PLAVIX [Concomitant]
     Active Substance: CLOPIDOGREL BISULFATE
     Dosage: STRENGTH: 75
     Route: 065
  6. APROVEL [Concomitant]
     Active Substance: IRBESARTAN
     Dosage: STRENGTH: 150
     Route: 065
  7. VICTOZA [Concomitant]
     Active Substance: LIRAGLUTIDE
     Dosage: STRENGTH:1.8
  8. ZYLORIC [Suspect]
     Active Substance: ALLOPURINOL
     Route: 048
     Dates: end: 20150620
  9. CORDARONE [Concomitant]
     Active Substance: AMIODARONE HYDROCHLORIDE
     Dosage: STRENGTH: 200
  10. LYRICA [Concomitant]
     Active Substance: PREGABALIN
     Dosage: STRENGTH:75
  11. TAHOR [Concomitant]
     Active Substance: ATORVASTATIN CALCIUM
     Dosage: STRENGTH: 40
  12. TRAMADOL. [Concomitant]
     Active Substance: TRAMADOL
     Route: 065
  13. AMLOR [Concomitant]
     Active Substance: AMLODIPINE BESYLATE
     Dosage: STRENGTH:5

REACTIONS (2)
  - Toxic skin eruption [Recovering/Resolving]
  - Acute kidney injury [Recovering/Resolving]

NARRATIVE: CASE EVENT DATE: 20150617
